FAERS Safety Report 5277605-1 (Version None)
Quarter: 2007Q1

REPORT INFORMATION
  Report Type: 
  Country: None (occurrence: None)
  Receive Date: 20070327
  Receipt Date: 20070315
  Transmission Date: 20070707
  Serious: Yes (Hospitalization)
  Sender: FDA-Public Use
  Company Number: US-SANOFI-SYNTHELABO-A03200702008

PATIENT
  Age: 65 Year
  Sex: Female

DRUGS (6)
  1. AMBIEN [Suspect]
     Indication: INSOMNIA
     Dosage: UNK
     Route: 048
     Dates: start: 20060801, end: 20060101
  2. HYPERCHOLESTEROLEMIA NOS [Concomitant]
     Dosage: UNK
     Route: 065
  3. ANTIHYPERTENSIVE NOS [Concomitant]
     Dosage: UNK
     Route: 065
  4. PROZAC [Concomitant]
     Dosage: UNK
     Route: 048
  5. NEXIUM [Concomitant]
     Dosage: UNK
     Route: 065
  6. TAMOXIFEN CITRATE [Concomitant]
     Dosage: UNK
     Route: 065

REACTIONS (5)
  - CEREBROVASCULAR ACCIDENT [None]
  - CONVULSION [None]
  - FACIAL PALSY [None]
  - MEMORY IMPAIRMENT [None]
  - ROAD TRAFFIC ACCIDENT [None]
